FAERS Safety Report 4717185-X (Version None)
Quarter: 2005Q3

REPORT INFORMATION
  Report Type: 
  Country: None (occurrence: None)
  Receive Date: 20050719
  Receipt Date: 20050602
  Transmission Date: 20060218
  Serious: Yes (Death, Other)
  Sender: FDA-Public Use
  Company Number: PHFR2005GB02000

PATIENT
  Age: 48 Year
  Sex: Male

DRUGS (6)
  1. CLOZAPINE [Suspect]
     Indication: SCHIZOPHRENIA
     Dosage: 575MG/DAY
     Route: 048
     Dates: start: 20020114
  2. VALPROATE SODIUM [Concomitant]
     Indication: CONVULSION
     Dosage: 1G/DAY
     Route: 048
     Dates: start: 20050112
  3. CITALOPRAM [Concomitant]
     Indication: DEPRESSION
     Dosage: 20MG/DAY
     Route: 048
     Dates: start: 20020812
  4. VITAMIN B COMPLEX CAP [Concomitant]
     Indication: ALCOHOLISM
     Route: 048
     Dates: start: 20020813
  5. ASCORBIC ACID [Concomitant]
     Indication: ALCOHOLISM
     Dosage: 200MG/DAY
     Route: 048
  6. THIAMINE [Concomitant]
     Indication: ALCOHOLISM
     Dosage: 200MG/DAY
     Route: 048

REACTIONS (6)
  - CHEST PAIN [None]
  - CIRCULATORY COLLAPSE [None]
  - CORONARY ARTERY DISEASE [None]
  - MYOCARDIAL INFARCTION [None]
  - PULSE ABSENT [None]
  - RESPIRATORY ARREST [None]
